FAERS Safety Report 10230390 (Version 1)
Quarter: 2014Q2

REPORT INFORMATION
  Report Type: Spontaneous
  Country: US (occurrence: US)
  Receive Date: 20140611
  Receipt Date: 20140611
  Transmission Date: 20141212
  Serious: No
  Sender: FDA-Public Use
  Company Number: US-INCYTE CORPORATION-2014IN000468

PATIENT
  Sex: Male

DRUGS (12)
  1. JAKAFI [Suspect]
     Indication: MYELOFIBROSIS
     Dosage: 20 MG, BID
     Route: 048
     Dates: start: 20140118
  2. TUMS 500 CALCIUM [Concomitant]
  3. TOPROL [Concomitant]
  4. ALBUTEROL                          /00139501/ [Concomitant]
     Dosage: INHALED SOLUTION
  5. WARFARIN [Concomitant]
  6. CLARITIN                           /00413701/ [Concomitant]
  7. ASPIRIN [Concomitant]
     Dosage: 81 MG, UNK
  8. CO Q10 [Concomitant]
  9. VITAMIN D                          /00107901/ [Concomitant]
  10. VITAMIN B12                        /00056201/ [Concomitant]
  11. ALTACE [Concomitant]
  12. MULTIVITAMIN                       /00097801/ [Concomitant]

REACTIONS (1)
  - Rhinorrhoea [Unknown]
